FAERS Safety Report 10736166 (Version 1)
Quarter: 2015Q1

REPORT INFORMATION
  Report Type: Spontaneous
  Country: FR (occurrence: None)
  Receive Date: 20150121
  Receipt Date: 20150121
  Transmission Date: 20150721
  Serious: No
  Sender: FDA-Public Use
  Company Number: FR2015GSK001844

PATIENT
  Age: 42 Year
  Sex: Male

DRUGS (6)
  1. ACUPAN(NEFOPAM HYDROCHLORIDE) [Concomitant]
  2. LYRICA [Suspect]
     Active Substance: PREGABALIN
     Route: 048
     Dates: start: 20141104
  3. DEROXAT (PAROXETINE HYDROCHLORIDE) UNKNOWN (LOT # UNKNOWN) [Suspect]
     Active Substance: PAROXETINE HYDROCHLORIDE
     Route: 048
     Dates: start: 20141028
  4. FERINJECT [Suspect]
     Active Substance: FERRIC CARBOXYMALTOSE
     Dosage: 500 MG, Z; INTRAVNEOUS INF
     Route: 042
     Dates: start: 20141112, end: 20141126
  5. TOPALGIC(TRAMADOL HYDROCHLORIDE) [Concomitant]
  6. BLOOD TRANSFUSION (BLOOD TRANSFUSION, AUXILIARY PRODUCTS) [Concomitant]

REACTIONS (1)
  - Thrombocytosis [None]

NARRATIVE: CASE EVENT DATE: 20141115
